FAERS Safety Report 15963426 (Version 1)
Quarter: 2019Q1

REPORT INFORMATION
  Report Type: Spontaneous
  Country: US (occurrence: US)
  Receive Date: 20190214
  Receipt Date: 20190214
  Transmission Date: 20190417
  Serious: No
  Sender: FDA-Public Use
  Company Number: US-ALLERGAN-1827765US

PATIENT
  Age: 85 Year
  Sex: Male

DRUGS (1)
  1. OZURDEX [Suspect]
     Active Substance: DEXAMETHASONE
     Indication: DIABETIC RETINAL OEDEMA
     Dosage: 0.7 MG, SINGLE
     Route: 031
     Dates: start: 20180509, end: 20180509

REACTIONS (5)
  - Complication of device insertion [Unknown]
  - Eye irritation [Unknown]
  - Visual impairment [Recovering/Resolving]
  - Vitreous floaters [Unknown]
  - Device malfunction [Unknown]

NARRATIVE: CASE EVENT DATE: 20180509
